FAERS Safety Report 10080613 (Version 1)
Quarter: 2014Q2

REPORT INFORMATION
  Report Type: Spontaneous
  Country: TR (occurrence: None)
  Receive Date: 20140414
  Receipt Date: 20140414
  Transmission Date: 20141212
  Serious: Yes (Death)
  Sender: FDA-Public Use
  Company Number: UTC-046928

PATIENT
  Age: 23 Year
  Sex: Female

DRUGS (3)
  1. REMODULIN [Suspect]
     Indication: PULMONARY ARTERIAL HYPERTENSION
     Dosage: 0.816 ML (0.034 ML, 1 IN 1 HR) SUBCUTANEOUS
     Dates: start: 20120705, end: 20140329
  2. BOSENTAN (BOSETAN) [Concomitant]
  3. SILDENAFIL (SILDENAFIL) [Concomitant]

REACTIONS (1)
  - Cardiac arrest [None]
